FAERS Safety Report 18457167 (Version 2)
Quarter: 2020Q4

REPORT INFORMATION
  Report Type: Report from Study
  Country: None (occurrence: US)
  Receive Date: 20201103
  Receipt Date: 20201204
  Transmission Date: 20210114
  Serious: Yes (Other)
  Sender: FDA-Public Use
  Company Number: US-BIOVITRUM-2020US5091

PATIENT
  Sex: Male

DRUGS (1)
  1. KINERET [Suspect]
     Active Substance: ANAKINRA
     Indication: PRODUCT USED FOR UNKNOWN INDICATION

REACTIONS (9)
  - Peripheral swelling [Unknown]
  - Systemic lupus erythematosus [Unknown]
  - Pain [Unknown]
  - Erythema [Unknown]
  - Rheumatoid arthritis [Unknown]
  - Sepsis [Unknown]
  - Hyperhidrosis [Unknown]
  - Oral mucosal blistering [Unknown]
  - Infection [Unknown]
